FAERS Safety Report 16141110 (Version 1)
Quarter: 2019Q2

REPORT INFORMATION
  Report Type: Spontaneous
  Country: US (occurrence: US)
  Receive Date: 20190401
  Receipt Date: 20190401
  Transmission Date: 20190711
  Serious: No
  Sender: FDA-Public Use
  Company Number: US-PFIZER INC-2019131925

PATIENT
  Age: 51 Year
  Sex: Female

DRUGS (1)
  1. XELJANZ XR [Suspect]
     Active Substance: TOFACITINIB CITRATE
     Indication: RHEUMATOID ARTHRITIS
     Dosage: 11 MG, ONCE A DAY
     Route: 048
     Dates: start: 201902

REACTIONS (15)
  - Visual impairment [Unknown]
  - Fatigue [Unknown]
  - Headache [Unknown]
  - Burning sensation [Unknown]
  - Muscle spasms [Unknown]
  - Platelet count increased [Unknown]
  - Pyrexia [Unknown]
  - Hypoaesthesia [Unknown]
  - Blood chloride increased [Unknown]
  - Constipation [Unknown]
  - Feeling hot [Unknown]
  - Myalgia [Unknown]
  - Dysphonia [Unknown]
  - Serum ferritin decreased [Unknown]
  - Paranasal sinus discomfort [Unknown]
